FAERS Safety Report 9104316 (Version 2)
Quarter: 2013Q1

REPORT INFORMATION
  Report Type: Spontaneous
  Country: US (occurrence: US)
  Receive Date: 20130219
  Receipt Date: 20130226
  Transmission Date: 20140127
  Serious: Yes (Other)
  Sender: FDA-Public Use
  Company Number: US-AMGEN-USASP2013009816

PATIENT
  Age: 52 Year
  Sex: Female
  Weight: 61.22 kg

DRUGS (3)
  1. ENBREL [Suspect]
     Indication: PSORIASIS
     Dosage: 50 MG, QWK
     Dates: end: 201203
  2. ENBREL [Suspect]
     Indication: PSORIATIC ARTHROPATHY
  3. ESTRADIOL [Concomitant]
     Dosage: UNK

REACTIONS (2)
  - Anal cancer [Unknown]
  - Squamous cell carcinoma [Recovered/Resolved]
